FAERS Safety Report 5832720-6 (Version None)
Quarter: 2008Q3

REPORT INFORMATION
  Report Type: 
  Country: None (occurrence: None)
  Receive Date: 20080804
  Receipt Date: 20080721
  Transmission Date: 20090109
  Serious: Yes (Hospitalization)
  Sender: FDA-Public Use
  Company Number: PHHO2002AU10109

PATIENT
  Sex: Male
  Weight: 73 kg

DRUGS (7)
  1. RAD 666 RAD+ [Suspect]
     Indication: RENAL TRANSPLANT
     Dosage: 1.5 MG, BID
     Route: 048
     Dates: start: 19990703, end: 20020707
  2. RAD 666 / RAD 001A [Suspect]
     Indication: RENAL TRANSPLANT
     Dosage: 1.5 MG, BID
     Route: 048
     Dates: start: 20020708, end: 20021210
  3. NEORAL [Suspect]
     Indication: RENAL TRANSPLANT
     Dosage: 100 MG, BID
     Route: 048
     Dates: start: 19990704
  4. PREDNISOLONE [Suspect]
     Indication: RENAL TRANSPLANT
     Dosage: 5 MG/DAY
     Route: 048
     Dates: start: 19990704
  5. ATORVASTATIN [Concomitant]
     Indication: HYPERLIPIDAEMIA
     Route: 048
     Dates: start: 19990802
  6. ATENOLOL [Concomitant]
     Indication: HYPERTENSION
     Route: 048
     Dates: start: 19990818
  7. ADALAT [Concomitant]
     Indication: HYPERTENSION
     Route: 048
     Dates: start: 20011009

REACTIONS (3)
  - DIABETES MELLITUS [None]
  - HYPERLIPIDAEMIA [None]
  - THIRST [None]
